FAERS Safety Report 5278250-4 (Version None)
Quarter: 2007Q1

REPORT INFORMATION
  Report Type: 
  Country: None (occurrence: None)
  Receive Date: 20061207
  Receipt Date: 20060201
  Transmission Date: 20070707
  Serious: Yes (Hospitalization)
  Sender: FDA-Public Use
  Company Number: 2006UW01805

PATIENT
  Age: 85 Year
  Sex: Male
  Weight: 83 kg

DRUGS (6)
  1. TOPROL-XL [Suspect]
     Indication: ARRHYTHMIA
     Dosage: 25 MG PO
     Route: 048
     Dates: start: 20051201
  2. TOPROL-XL [Suspect]
     Indication: HYPERTENSION
     Dosage: 25 MG PO
     Route: 048
     Dates: start: 20051201
  3. TOPROL-XL [Suspect]
     Indication: ARRHYTHMIA
     Dosage: 50 MG PO
     Route: 048
     Dates: start: 20060118
  4. TOPROL-XL [Suspect]
     Indication: HYPERTENSION
     Dosage: 50 MG PO
     Route: 048
     Dates: start: 20060118
  5. LIPITOR [Concomitant]
  6. FOSINOPRIL SODIUM [Concomitant]

REACTIONS (1)
  - LOSS OF CONSCIOUSNESS [None]
